FAERS Safety Report 12193190 (Version 2)
Quarter: 2016Q2

REPORT INFORMATION
  Report Type: Spontaneous
  Country: GB (occurrence: GB)
  Receive Date: 20160319
  Receipt Date: 20160419
  Transmission Date: 20160815
  Serious: Yes (Other)
  Sender: FDA-Public Use
  Company Number: GB-AUROBINDO-AUR-APL-2016-03488

PATIENT
  Age: 50 Year
  Sex: Male

DRUGS (8)
  1. PARACETAMOL [Concomitant]
     Active Substance: ACETAMINOPHEN
     Indication: PRODUCT USED FOR UNKNOWN INDICATION
     Route: 065
  2. TRAMADOL 50MG [Suspect]
     Active Substance: TRAMADOL
     Indication: NEPHROLITHIASIS
  3. SALBUTAMOL [Concomitant]
     Active Substance: ALBUTEROL
     Indication: PRODUCT USED FOR UNKNOWN INDICATION
     Route: 065
  4. FLUTICASONE [Concomitant]
     Active Substance: FLUTICASONE\FLUTICASONE PROPIONATE
     Indication: PRODUCT USED FOR UNKNOWN INDICATION
     Route: 065
  5. TRAMADOL 50MG [Suspect]
     Active Substance: TRAMADOL
     Indication: RENAL COLIC
     Dosage: 50 MG, 3 TIMES A DAY
     Route: 048
     Dates: start: 20080305
  6. DICLOFENAC [Concomitant]
     Active Substance: DICLOFENAC
     Indication: PRODUCT USED FOR UNKNOWN INDICATION
     Route: 065
  7. SALMETEROL [Concomitant]
     Active Substance: SALMETEROL
     Indication: PRODUCT USED FOR UNKNOWN INDICATION
     Route: 065
  8. GAVISCON                           /00237601/ [Concomitant]
     Active Substance: ALUMINUM HYDROXIDE\MAGNESIUM CARBONATE
     Indication: PRODUCT USED FOR UNKNOWN INDICATION
     Dosage: AS PRN
     Route: 065

REACTIONS (7)
  - Muscle twitching [Unknown]
  - Dysphemia [Unknown]
  - Abdominal pain [Unknown]
  - Tremor [Unknown]
  - Abdominal rigidity [Unknown]
  - Dyskinesia [Unknown]
  - Movement disorder [Unknown]

NARRATIVE: CASE EVENT DATE: 20110423
